FAERS Safety Report 6043878-0 (Version None)
Quarter: 2009Q1

REPORT INFORMATION
  Report Type: 
  Country: None (occurrence: None)
  Receive Date: 20090120
  Receipt Date: 20090115
  Transmission Date: 20090719
  Serious: Yes (Death)
  Sender: FDA-Public Use
  Company Number: US-BRISTOL-MYERS SQUIBB COMPANY-14472906

PATIENT
  Age: 54 Year
  Sex: Female

DRUGS (9)
  1. TRAZODONE HCL [Suspect]
     Route: 048
  2. ACETAMINOPHEN [Suspect]
     Route: 048
  3. FENOFIBRATE [Suspect]
     Route: 048
  4. DOXEPIN HCL [Suspect]
     Route: 048
  5. CITALOPRAM [Suspect]
     Route: 048
  6. FLURAZEPAM [Suspect]
     Route: 048
  7. DULOXETINE HCL [Suspect]
     Route: 048
  8. FLUOXETINE [Suspect]
     Route: 048
  9. MONTELUKAST SODIUM [Suspect]
     Route: 048

REACTIONS (2)
  - CARDIO-RESPIRATORY ARREST [None]
  - COMPLETED SUICIDE [None]
